FAERS Safety Report 15604911 (Version 3)
Quarter: 2019Q1

REPORT INFORMATION
  Report Type: Spontaneous
  Country: IT (occurrence: IT)
  Receive Date: 20181111
  Receipt Date: 20190113
  Transmission Date: 20190417
  Serious: Yes (Life-Threatening)
  Sender: FDA-Public Use
  Company Number: IT-BEH-2018096616

PATIENT
  Age: 2 Year
  Sex: Male
  Weight: 11.85 kg

DRUGS (9)
  1. PRIVIGEN [Suspect]
     Active Substance: HUMAN IMMUNOGLOBULIN G
     Indication: HYPOGAMMAGLOBULINAEMIA
     Dosage: 5 G, TOT
     Route: 042
     Dates: start: 20181024, end: 20181024
  2. MEROPENEM HIKMA [Concomitant]
     Active Substance: MEROPENEM
     Dosage: UNK
     Route: 065
  3. COLISTIN [Concomitant]
     Active Substance: COLISTIN
     Indication: HYPERPYREXIA
     Dosage: UNK
     Route: 065
     Dates: start: 20181022, end: 20181025
  4. PLATELETS [Concomitant]
     Active Substance: HUMAN PLATELET, ALLOGENIC
     Dosage: 22 UNITS, UNK
     Route: 065
     Dates: end: 20181022
  5. DAPTOMYCIN. [Concomitant]
     Active Substance: DAPTOMYCIN
     Indication: HYPERPYREXIA
     Dosage: UNK
     Route: 065
     Dates: start: 20181022, end: 20181024
  6. PIPERACILLIN AND TAZOBACTAM [Concomitant]
     Active Substance: PIPERACILLIN SODIUM\TAZOBACTAM SODIUM
     Indication: HYPERPYREXIA
     Dosage: UNK
     Route: 042
     Dates: start: 20181027, end: 20181031
  7. COLISTIN [Concomitant]
     Active Substance: COLISTIN
     Dosage: UNK
     Route: 065
  8. RED BLOOD CELLS, CONCENTRATED [Concomitant]
     Active Substance: HUMAN RED BLOOD CELL
     Dosage: 3 UNITS, UNK
     Route: 065
     Dates: end: 20181024
  9. MEROPENEM. [Concomitant]
     Active Substance: MEROPENEM
     Indication: HYPERPYREXIA
     Dosage: UNK
     Route: 065
     Dates: start: 20181022, end: 20181027

REACTIONS (4)
  - Tachycardia [Recovered/Resolved]
  - Hyperpyrexia [Recovered/Resolved]
  - Tachypnoea [Recovered/Resolved]
  - Unresponsive to stimuli [Recovered/Resolved]

NARRATIVE: CASE EVENT DATE: 20181024
